FAERS Safety Report 5885847-7 (Version None)
Quarter: 2008Q3

REPORT INFORMATION
  Report Type: 
  Country: None (occurrence: None)
  Receive Date: 20080917
  Receipt Date: 20080916
  Transmission Date: 20090109
  Serious: Yes (Hospitalization)
  Sender: FDA-Public Use
  Company Number: JP-BRISTOL-MYERS SQUIBB COMPANY-14318786

PATIENT
  Age: 85 Year

DRUGS (3)
  1. MAXIPIME [Suspect]
     Indication: OSTEOMYELITIS
     Route: 041
  2. VANCOMYCIN [Suspect]
     Indication: OSTEOMYELITIS
     Route: 042
  3. CLINDAMYCIN HCL [Suspect]
     Indication: OSTEOMYELITIS
     Route: 042

REACTIONS (2)
  - ALTERED STATE OF CONSCIOUSNESS [None]
  - DYSKINESIA [None]
